FAERS Safety Report 8406328-2 (Version None)
Quarter: 2012Q2

REPORT INFORMATION
  Report Type: 
  Country: None (occurrence: None)
  Receive Date: 20120604
  Receipt Date: 20120530
  Transmission Date: 20120825
  Serious: Yes (Hospitalization, Disabling)
  Sender: FDA-Public Use
  Company Number: PHHY2012NL026191

PATIENT
  Sex: Male
  Weight: 75 kg

DRUGS (5)
  1. ZOMETA [Suspect]
     Indication: PROSTATE CANCER METASTATIC
     Dosage: 4 MG, ONCE PER 28 DAYS
     Route: 042
     Dates: start: 20120229
  2. ESOMEPRAZOLE MAGNESIUM [Concomitant]
     Dosage: 20 MG, QD
  3. NAPROXEN [Concomitant]
     Dosage: 500 MG, QD
  4. ACETAMINOPHEN [Concomitant]
  5. CALCIUM D3 [Concomitant]

REACTIONS (3)
  - MUSCULAR WEAKNESS [None]
  - PARAPLEGIA [None]
  - SPINAL CORD INJURY [None]
